FAERS Safety Report 9228690 (Version 2)
Quarter: 2013Q2

REPORT INFORMATION
  Report Type: Spontaneous
  Country: US (occurrence: US)
  Receive Date: 20130412
  Receipt Date: 20130528
  Transmission Date: 20140414
  Serious: Yes (Other)
  Sender: FDA-Public Use
  Company Number: US-PFIZER INC-2013116013

PATIENT
  Age: 63 Year
  Sex: Female
  Weight: 73 kg

DRUGS (9)
  1. LYRICA [Suspect]
     Indication: FIBROMYALGIA
     Dosage: 50 MG, 2X/DAY
     Dates: start: 2009, end: 201105
  2. LYRICA [Suspect]
     Dosage: 75 MG, 2X/DAY
     Dates: start: 20120921
  3. LYRICA [Suspect]
     Dosage: 150 MG, 2X/DAY
     Dates: start: 2012
  4. LYRICA [Suspect]
     Dosage: 75 MG, 2X/DAY
  5. LYRICA [Suspect]
  6. HYDROCHLOROTHIAZIDE [Concomitant]
     Indication: HYPERTENSION
     Dosage: 25 MG, 1X/DAY
  7. ENALAPRIL [Concomitant]
     Indication: HYPERTENSION
     Dosage: 10 MG, 1X/DAY
  8. DILTIAZEM [Concomitant]
     Indication: HYPERTENSION
     Dosage: 20 MG, 2X/DAY
  9. ATORVASTATIN CALCIUM [Concomitant]
     Indication: BLOOD CHOLESTEROL INCREASED
     Dosage: UNK

REACTIONS (17)
  - Intervertebral disc disorder [Unknown]
  - Back injury [Unknown]
  - Gait disturbance [Unknown]
  - Oliguria [Unknown]
  - Drug ineffective [Unknown]
  - Swelling [Unknown]
  - Rib deformity [Unknown]
  - Pain in extremity [Unknown]
  - Muscle spasms [Unknown]
  - Myalgia [Unknown]
  - Mood swings [Unknown]
  - Crying [Unknown]
  - Local swelling [Unknown]
  - Sensation of heaviness [Unknown]
  - Dizziness [Unknown]
  - Nausea [Unknown]
  - Emotional disorder [Unknown]
